FAERS Safety Report 5390966-8 (Version None)
Quarter: 2007Q3

REPORT INFORMATION
  Report Type: 
  Country: None (occurrence: None)
  Receive Date: 20070716
  Receipt Date: 20070423
  Transmission Date: 20080115
  Serious: Yes (Hospitalization)
  Sender: FDA-Public Use
  Company Number: MPS1-10683

PATIENT
  Age: 6 Year
  Sex: Female
  Weight: 14.5 kg

DRUGS (1)
  1. ALDURAZYME [Suspect]
     Indication: MUCOPOLYSACCHARIDOSIS I
     Dosage: 8.7 MG QWK IV
     Route: 030
     Dates: start: 20030909

REACTIONS (2)
  - DEVICE FAILURE [None]
  - SPINAL FUSION SURGERY [None]
